FAERS Safety Report 8021534-7 (Version None)
Quarter: 2011Q4

REPORT INFORMATION
  Report Type: 
  Country: None (occurrence: None)
  Receive Date: 20111230
  Receipt Date: 20111219
  Transmission Date: 20120403
  Serious: Yes (Hospitalization)
  Sender: FDA-Public Use
  Company Number: JPI-P-018848

PATIENT
  Age: 9 Decade
  Sex: Female

DRUGS (2)
  1. XYREM [Suspect]
     Indication: CATAPLEXY
     Dosage: 4.5 GM (2.25 GM, 2 IN 1 D), ORAL, 6 GM (3 GM, 2 IN 1 D), ORAL
     Route: 048
     Dates: start: 20040101
  2. XYREM [Suspect]
     Indication: CATAPLEXY
     Dosage: 4.5 GM (2.25 GM, 2 IN 1 D), ORAL, 6 GM (3 GM, 2 IN 1 D), ORAL
     Route: 048
     Dates: start: 20030708, end: 20040101

REACTIONS (16)
  - DIVERTICULUM [None]
  - ABDOMINAL DISCOMFORT [None]
  - DIZZINESS [None]
  - JOINT INJURY [None]
  - GAIT DISTURBANCE [None]
  - TREMOR [None]
  - CONSTIPATION [None]
  - OSTEOARTHRITIS [None]
  - FALL [None]
  - HAEMORRHAGE [None]
  - ASTHENIA [None]
  - JOINT SWELLING [None]
  - VISION BLURRED [None]
  - ARTHRALGIA [None]
  - SLEEP APNOEA SYNDROME [None]
  - HALLUCINATION [None]
